FAERS Safety Report 22661731 (Version 1)
Quarter: 2023Q2

REPORT INFORMATION
  Report Type: Spontaneous
  Country: FR (occurrence: FR)
  Receive Date: 20230630
  Receipt Date: 20230630
  Transmission Date: 20230721
  Serious: Yes (Hospitalization)
  Sender: FDA-Public Use
  Company Number: None

PATIENT
  Age: 63 Year
  Sex: Female
  Weight: 83 kg

DRUGS (13)
  1. PACLITAXEL [Suspect]
     Active Substance: PACLITAXEL
     Indication: Ovarian cancer
     Dosage: 133 MG, SINGLE
     Route: 042
     Dates: start: 20230123
  2. PACLITAXEL [Suspect]
     Active Substance: PACLITAXEL
     Dosage: 132 MG, SINGLE
     Route: 042
     Dates: start: 20230130
  3. PACLITAXEL [Suspect]
     Active Substance: PACLITAXEL
     Dosage: 132 MG, SINGLE
     Route: 042
     Dates: start: 20230206
  4. CARBOPLATIN [Suspect]
     Active Substance: CARBOPLATIN
     Indication: Ovarian cancer
     Dosage: 221 MG, SINGLE
     Route: 042
     Dates: start: 20230123
  5. CARBOPLATIN [Suspect]
     Active Substance: CARBOPLATIN
     Dosage: 205 MG, SINGLE
     Route: 042
     Dates: start: 20230130
  6. CARBOPLATIN [Suspect]
     Active Substance: CARBOPLATIN
     Dosage: 168 MG, SINGLE
     Route: 042
     Dates: start: 20230206
  7. SPIRONOLACTONE [Concomitant]
     Active Substance: SPIRONOLACTONE
     Dosage: 75 MG, 1X/DAY
  8. CRESTOR [Concomitant]
     Active Substance: ROSUVASTATIN CALCIUM
     Dosage: 5 MG, 1X/DAY
  9. LANSOPRAZOLE [Concomitant]
     Active Substance: LANSOPRAZOLE
     Dosage: 15 MG, 1X/DAY
  10. CLOBAZAM [Concomitant]
     Active Substance: CLOBAZAM
     Dosage: 20 MG, 1X/DAY
  11. ACETAMINOPHEN\CAFFEINE [Concomitant]
     Active Substance: ACETAMINOPHEN\CAFFEINE
     Indication: Pain
     Dosage: 1 DF, AS NEEDED
  12. AVASTIN [Concomitant]
     Active Substance: BEVACIZUMAB
     Dosage: 15 MG/KG
     Dates: start: 20221123, end: 20230103
  13. LAMOTRIGINE [Concomitant]
     Active Substance: LAMOTRIGINE
     Dosage: 150 MG, 1X/DAY

REACTIONS (1)
  - Hyperthermia [Recovered/Resolved]

NARRATIVE: CASE EVENT DATE: 20230123
